FAERS Safety Report 21254141 (Version 2)
Quarter: 2022Q4

REPORT INFORMATION
  Report Type: Spontaneous
  Country: PT (occurrence: PT)
  Receive Date: 20220825
  Receipt Date: 20221028
  Transmission Date: 20230113
  Serious: Yes (Other)
  Sender: FDA-Public Use
  Company Number: None

PATIENT

DRUGS (7)
  1. UMECLIDINIUM BROMIDE\VILANTEROL TRIFENATATE [Suspect]
     Active Substance: UMECLIDINIUM BROMIDE\VILANTEROL TRIFENATATE
     Indication: Cough
     Dosage: 1 PUFF(S), QD, REINTRODUCTION OF THE SUSPECTED DRUG AT AN UNKNOWN DATE. DOSAGE: 1 PUFF ONCE A DAY IN
     Route: 055
     Dates: start: 20220801, end: 202208
  2. UMECLIDINIUM BROMIDE\VILANTEROL TRIFENATATE [Suspect]
     Active Substance: UMECLIDINIUM BROMIDE\VILANTEROL TRIFENATATE
     Indication: Productive cough
     Dosage: 1 PUFF(S), QD, REINTRODUCTION OF THE SUSPECTED DRUG AT AN UNKNOWN DATE. DOSAGE: 1 PUFF ONCE A DAY IN
     Route: 055
     Dates: start: 202208, end: 202208
  3. UMECLIDINIUM BROMIDE\VILANTEROL TRIFENATATE [Suspect]
     Active Substance: UMECLIDINIUM BROMIDE\VILANTEROL TRIFENATATE
     Indication: Dyspnoea
  4. ASPIRIN [Concomitant]
     Active Substance: ASPIRIN
     Indication: Product used for unknown indication
     Dosage: UNK
     Route: 048
  5. FUROSEMIDE [Concomitant]
     Active Substance: FUROSEMIDE
     Indication: Product used for unknown indication
     Dosage: UNK
     Route: 065
  6. PRAVASTATIN [Concomitant]
     Active Substance: PRAVASTATIN
     Indication: Product used for unknown indication
     Dosage: UNK
     Route: 048
  7. ENALAPRIL [Concomitant]
     Active Substance: ENALAPRIL
     Indication: Product used for unknown indication
     Dosage: UNK
     Route: 048

REACTIONS (3)
  - Vision blurred [Recovered/Resolved]
  - Abnormal sensation in eye [Recovering/Resolving]
  - Blindness transient [Recovered/Resolved]

NARRATIVE: CASE EVENT DATE: 20220803
